FAERS Safety Report 11254127 (Version 2)
Quarter: 2015Q3

REPORT INFORMATION
  Report Type: Spontaneous
  Country: US (occurrence: US)
  Receive Date: 20150709
  Receipt Date: 20150806
  Transmission Date: 20151125
  Serious: Yes (Hospitalization)
  Sender: FDA-Public Use
  Company Number: US-PFIZER INC-2015225644

PATIENT
  Age: 6 Decade
  Sex: Male
  Weight: 91 kg

DRUGS (4)
  1. DEPO-MEDROL [Suspect]
     Active Substance: METHYLPREDNISOLONE ACETATE
     Indication: ARTHRALGIA
     Dosage: 1 ML, SINGLE
     Dates: start: 20150217
  2. DEPO-MEDROL [Suspect]
     Active Substance: METHYLPREDNISOLONE ACETATE
     Dosage: 1 ML, SINGLE
  3. DEPO-MEDROL [Suspect]
     Active Substance: METHYLPREDNISOLONE ACETATE
     Dosage: 1 ML, SINGLE
  4. DEPO-MEDROL [Suspect]
     Active Substance: METHYLPREDNISOLONE ACETATE
     Dosage: 1 ML, SINGLE

REACTIONS (1)
  - Septic arthritis staphylococcal [Recovering/Resolving]

NARRATIVE: CASE EVENT DATE: 20150217
